FAERS Safety Report 8818210 (Version 1)
Quarter: 2012Q4

REPORT INFORMATION
  Report Type: 
  Country: US (occurrence: US)
  Receive Date: 20121001
  Receipt Date: 20121001
  Transmission Date: 20130627
  Serious: No
  Sender: FDA-Public Use
  Company Number: US-PFIZER INC-2012239357

PATIENT
  Sex: Female

DRUGS (2)
  1. LYRICA [Suspect]
  2. HYDROCODONE [Concomitant]

REACTIONS (1)
  - Musculoskeletal pain [Unknown]
